FAERS Safety Report 4675879-9 (Version None)
Quarter: 2005Q2

REPORT INFORMATION
  Report Type: 
  Country: None (occurrence: None)
  Receive Date: 20050525
  Receipt Date: 20050516
  Transmission Date: 20051028
  Serious: Yes (Other)
  Sender: FDA-Public Use
  Company Number: 2005075173

PATIENT
  Age: 56 Year
  Sex: Male

DRUGS (6)
  1. NEURONTIN [Suspect]
     Indication: NEURALGIA
     Dosage: 900 MG (300 MG, 3 IN 3 D), ORAL
     Route: 048
     Dates: start: 20010720
  2. HYDROXOCOBALAMIN (HYDROXCOBALAMIN) [Concomitant]
  3. LORAZEPAM [Concomitant]
  4. MELOXICAM [Concomitant]
  5. OMEPRAZOLE [Concomitant]
  6. PAROXETINE HCL [Concomitant]

REACTIONS (5)
  - APPENDIX DISORDER [None]
  - DRUG WITHDRAWAL SYNDROME [None]
  - HYPERHIDROSIS [None]
  - SURGERY [None]
  - TREMOR [None]
